FAERS Safety Report 9907910 (Version 1)
Quarter: 2014Q1

REPORT INFORMATION
  Report Type: Spontaneous
  Country: US (occurrence: US)
  Receive Date: 20140219
  Receipt Date: 20140219
  Transmission Date: 20141002
  Serious: No
  Sender: FDA-Public Use
  Company Number: US-BIOGENIDEC-2014BI014826

PATIENT
  Age: 38 Year
  Sex: Female

DRUGS (3)
  1. TECFIDERA [Suspect]
     Indication: MULTIPLE SCLEROSIS
     Route: 048
     Dates: start: 20140131
  2. VITAMIN D [Concomitant]
     Route: 048
     Dates: start: 20131209
  3. LEXAPRO [Concomitant]
     Route: 048
     Dates: start: 20131209

REACTIONS (2)
  - Upper respiratory tract infection [Not Recovered/Not Resolved]
  - Abdominal discomfort [Unknown]
